FAERS Safety Report 8289516-8 (Version None)
Quarter: 2012Q2

REPORT INFORMATION
  Report Type: 
  Country: None (occurrence: None)
  Receive Date: 20120417
  Receipt Date: 20120411
  Transmission Date: 20120825
  Serious: Yes (Hospitalization, Disabling)
  Sender: FDA-Public Use
  Company Number: FR-PFIZER INC-2012089873

PATIENT
  Age: 43 Year
  Sex: Female

DRUGS (13)
  1. DOXORUBICIN HYDROCHLORIDE [Suspect]
     Dosage: UNK
     Route: 042
     Dates: start: 20110311, end: 20110701
  2. TAMOXIFEN CITRATE [Suspect]
     Dosage: UNK
     Route: 048
     Dates: start: 20070601, end: 20080401
  3. AROMASIN [Suspect]
     Dosage: UNK
     Route: 048
     Dates: start: 20100801, end: 20101101
  4. TAXOTERE [Suspect]
     Dosage: UNK
     Route: 042
     Dates: start: 20061117, end: 20070105
  5. AVASTIN [Suspect]
     Dosage: UNK
     Dates: start: 20100801, end: 20101101
  6. EPIRUBICIN HYDROCHLORIDE [Suspect]
     Dosage: 100 MG, UNK
     Route: 042
     Dates: start: 20060915, end: 20061027
  7. FEMARA [Suspect]
     Dosage: UNK
     Route: 048
     Dates: start: 20080401, end: 20100801
  8. CYCLOPHOSPHAMIDE [Suspect]
     Dosage: 500 MG, UNK
     Route: 042
     Dates: start: 20060915, end: 20061027
  9. AVASTIN [Suspect]
     Dosage: UNK
     Dates: start: 20101101, end: 20110126
  10. FLUOROURACIL [Suspect]
     Dosage: 500 MG, UNK
     Route: 042
     Dates: start: 20060915, end: 20061027
  11. AVASTIN [Suspect]
     Dosage: UNK
     Route: 042
     Dates: start: 20100326, end: 20100716
  12. XELODA [Suspect]
     Dosage: UNK
     Route: 048
     Dates: start: 20101101, end: 20110101
  13. TAXOTERE [Suspect]
     Dosage: UNK
     Dates: start: 20100326, end: 20100716

REACTIONS (2)
  - ALOPECIA [None]
  - ONYCHOLYSIS [None]
